FAERS Safety Report 7442608-5 (Version None)
Quarter: 2011Q2

REPORT INFORMATION
  Report Type: 
  Country: None (occurrence: None)
  Receive Date: 20110428
  Receipt Date: 20110419
  Transmission Date: 20111010
  Serious: Yes (Other)
  Sender: FDA-Public Use
  Company Number: PHHY2011RS33667

PATIENT
  Age: 43 Year
  Sex: Male

DRUGS (1)
  1. HALOPERIDOL [Suspect]

REACTIONS (1)
  - CHOLESTASIS [None]
